FAERS Safety Report 11353415 (Version 1)
Quarter: 2015Q3

REPORT INFORMATION
  Report Type: Spontaneous
  Country: US (occurrence: US)
  Receive Date: 20150807
  Receipt Date: 20150807
  Transmission Date: 20151125
  Serious: No
  Sender: FDA-Public Use
  Company Number: US-JNJFOC-20150413060

PATIENT
  Age: 65 Year
  Sex: Female
  Weight: 56.7 kg

DRUGS (2)
  1. MENS ROGAINE EXTRA STRENGTH [Suspect]
     Active Substance: MINOXIDIL
     Indication: ALOPECIA
     Dosage: 1/2 A CAPFUL
     Route: 061
     Dates: start: 20150103
  2. MENS ROGAINE EXTRA STRENGTH [Suspect]
     Active Substance: MINOXIDIL
     Route: 061

REACTIONS (3)
  - Burning sensation [Not Recovered/Not Resolved]
  - Off label use [Unknown]
  - Incorrect route of drug administration [Not Recovered/Not Resolved]
